FAERS Safety Report 4446069-X (Version None)
Quarter: 2004Q3

REPORT INFORMATION
  Report Type: 
  Country: None (occurrence: None)
  Receive Date: 20040907
  Receipt Date: 20040826
  Transmission Date: 20050211
  Serious: Yes (Death, Life-Threatening, Hospitalization)
  Sender: FDA-Public Use
  Company Number: US-2004-030922

PATIENT
  Age: 83 Year
  Sex: Female

DRUGS (2)
  1. ULTRAVIST 300 [Suspect]
     Indication: COMPUTERISED TOMOGRAM
     Dosage: 125 ML, 1 DOSE, INTRAVENOUS
     Route: 042
     Dates: start: 20040804, end: 20040804
  2. ULTRAVIST 300 [Suspect]
     Indication: COMPUTERISED TOMOGRAM ABDOMEN
     Dosage: 125 ML, 1 DOSE, INTRAVENOUS
     Route: 042
     Dates: start: 20040804, end: 20040804

REACTIONS (4)
  - CARDIO-RESPIRATORY ARREST [None]
  - COMA [None]
  - DYSKINESIA [None]
  - SWOLLEN TONGUE [None]
